FAERS Safety Report 11741682 (Version 2)
Quarter: 2016Q4

REPORT INFORMATION
  Report Type: Report from Study
  Country: CA (occurrence: CA)
  Receive Date: 20151116
  Receipt Date: 20161115
  Transmission Date: 20170206
  Serious: Yes (Death, Hospitalization)
  Sender: FDA-Public Use
  Company Number: CA-ROCHE-ITM201310IM004297

PATIENT
  Age: 53 Year
  Sex: Female
  Weight: 96 kg

DRUGS (3)
  1. ESBRIET [Suspect]
     Active Substance: PIRFENIDONE
     Route: 048
     Dates: start: 2013
  2. ESBRIET [Suspect]
     Active Substance: PIRFENIDONE
     Route: 048
     Dates: start: 20130712
  3. ESBRIET [Suspect]
     Active Substance: PIRFENIDONE
     Indication: IDIOPATHIC PULMONARY FIBROSIS
     Route: 048
     Dates: start: 20130705

REACTIONS (6)
  - Pulmonary function test decreased [Unknown]
  - Oxygen saturation decreased [Not Recovered/Not Resolved]
  - Blood pH increased [Unknown]
  - Death [Fatal]
  - Dyspnoea [Recovering/Resolving]
  - PO2 decreased [Unknown]

NARRATIVE: CASE EVENT DATE: 20130711
